FAERS Safety Report 7217478-0 (Version None)
Quarter: 2010Q4

REPORT INFORMATION
  Report Type: 
  Country: None (occurrence: None)
  Receive Date: 20101126
  Receipt Date: 20101001
  Transmission Date: 20110411
  Serious: No
  Sender: FDA-Public Use
  Company Number: 316322

PATIENT
  Age: 55 Year
  Sex: Female

DRUGS (2)
  1. VICTOZA [Suspect]
     Indication: TYPE 2 DIABETES MELLITUS
     Dosage: (0.6 MG, QD, SUBCUTANEOUS) (1.2 MG, QD, SUBCUTANEOUS)
     Route: 058
     Dates: start: 20100910, end: 20100915
  2. VICTOZA [Suspect]
     Indication: TYPE 2 DIABETES MELLITUS
     Dosage: (0.6 MG, QD, SUBCUTANEOUS) (1.2 MG, QD, SUBCUTANEOUS)
     Route: 058
     Dates: start: 20100916

REACTIONS (3)
  - DRUG DOSE OMISSION [None]
  - INJECTION SITE ERYTHEMA [None]
  - INJECTION SITE HAEMATOMA [None]
